FAERS Safety Report 9523939 (Version 1)
Quarter: 2013Q1

REPORT INFORMATION
  Report Type: Spontaneous
  Country: US (occurrence: None)
  Receive Date: 20130305
  Receipt Date: 20130305
  Transmission Date: 20140127
  Serious: Yes (Other)
  Sender: FDA-Public Use
  Company Number: 163-21880-12070198

PATIENT
  Age: 60 Year
  Sex: Female
  Weight: 71.67 kg

DRUGS (4)
  1. REVLIMID [Suspect]
     Indication: PLASMA CELL MYELOMA
     Dosage: 15 MG, DAYS 1-21 OF 28, PO
     Route: 048
     Dates: start: 20110705, end: 20120621
  2. SIMVASTATIN [Concomitant]
  3. MULTIVITAMINS (MULTIVITAMINS) (UNKNOWN) [Concomitant]
  4. FOLIC ACID (FOLIC ACID) (UNKNOWN) [Concomitant]

REACTIONS (2)
  - Neutropenia [None]
  - White blood cell count decreased [None]
